FAERS Safety Report 12818623 (Version 1)
Quarter: 2016Q4

REPORT INFORMATION
  Report Type: Spontaneous
  Country: US (occurrence: US)
  Receive Date: 20161006
  Receipt Date: 20161006
  Transmission Date: 20170207
  Serious: Yes (Other)
  Sender: FDA-Public Use
  Company Number: US-ROCHE-1837509

PATIENT
  Sex: Female

DRUGS (2)
  1. OPDIVO [Concomitant]
     Active Substance: NIVOLUMAB
  2. HERCEPTIN [Suspect]
     Active Substance: TRASTUZUMAB
     Indication: GASTRIC CANCER
     Route: 065

REACTIONS (1)
  - Disease recurrence [Unknown]
